FAERS Safety Report 15840527 (Version 1)
Quarter: 2019Q1

REPORT INFORMATION
  Report Type: Spontaneous
  Country: US (occurrence: US)
  Receive Date: 20190118
  Receipt Date: 20190118
  Transmission Date: 20190417
  Serious: Yes (Hospitalization, Other)
  Sender: FDA-Public Use
  Company Number: US-DRREDDYS-USA/USA/19/0107010

PATIENT
  Age: 33 Year
  Sex: Male

DRUGS (1)
  1. SEVELAMER CARBONATE. [Suspect]
     Active Substance: SEVELAMER CARBONATE
     Indication: END STAGE RENAL DISEASE
     Dosage: 2,400 MG BY MOUTH 3 TIMES DAILY FOR 2 YEARS
     Route: 048

REACTIONS (3)
  - Haematochezia [Recovered/Resolved]
  - Rectal ulcer [Unknown]
  - Abdominal pain [Unknown]
